FAERS Safety Report 4693380-3 (Version None)
Quarter: 2005Q2

REPORT INFORMATION
  Report Type: 
  Country: None (occurrence: None)
  Receive Date: 20050311
  Receipt Date: 20050311
  Transmission Date: 20051028
  Serious: Yes (Other)
  Sender: FDA-Public Use
  Company Number: None

PATIENT
  Age: 51 Year
  Sex: Male
  Weight: 97.5234 kg

DRUGS (6)
  1. CLOZAPINE [Suspect]
     Dosage: 400MG BID PO
     Route: 048
     Dates: start: 20040813
  2. EXELON [Concomitant]
  3. KLONOPIN [Concomitant]
  4. DEPAKOTE [Concomitant]
  5. ABILIFY [Concomitant]
  6. HALCION [Concomitant]

REACTIONS (9)
  - ABNORMAL BEHAVIOUR [None]
  - DELUSIONAL PERCEPTION [None]
  - DRUG INEFFECTIVE [None]
  - HALLUCINATION, AUDITORY [None]
  - INSOMNIA [None]
  - IRRITABILITY [None]
  - PHARMACEUTICAL PRODUCT COMPLAINT [None]
  - SPEECH DISORDER [None]
  - THINKING ABNORMAL [None]
